FAERS Safety Report 6991859-2 (Version None)
Quarter: 2010Q3

REPORT INFORMATION
  Report Type: 
  Country: None (occurrence: None)
  Receive Date: 20100917
  Receipt Date: 20100908
  Transmission Date: 20110219
  Serious: Yes (Life-Threatening, Hospitalization)
  Sender: FDA-Public Use
  Company Number: FR-PFIZER INC-2010113109

PATIENT
  Age: 70 Year
  Sex: Male

DRUGS (6)
  1. ALDACTONE [Suspect]
     Dosage: 75 MG, DAILY
     Route: 048
     Dates: end: 20100719
  2. PYOSTACINE [Suspect]
     Indication: ANIMAL BITE
     Dosage: 500 MG, 2DFX3 A DAY
     Route: 048
     Dates: start: 20100710
  3. PYOSTACINE [Suspect]
     Dosage: 500 MG, 3X/DAY
     Dates: end: 20100719
  4. LASIX [Suspect]
     Dosage: 20 MG, DAILY
     Route: 048
     Dates: end: 20100719
  5. GARDENAL ^AVENTIS^ [Concomitant]
     Dosage: 100 MG, 1X/DAY
     Route: 048
     Dates: start: 20100719, end: 20100719
  6. VITAMIN B1 AND B6 [Concomitant]
     Dosage: 2 DF, 3X/DAY
     Route: 048

REACTIONS (1)
  - GASTROINTESTINAL HAEMORRHAGE [None]
